FAERS Safety Report 4859674-3 (Version None)
Quarter: 2005Q4

REPORT INFORMATION
  Report Type: 
  Country: None (occurrence: None)
  Receive Date: 20051215
  Receipt Date: 20051215
  Transmission Date: 20060501
  Serious: No
  Sender: FDA-Public Use
  Company Number: None

PATIENT
  Age: 6 Year
  Sex: Male
  Weight: 24 kg

DRUGS (1)
  1. POLYGAM [Suspect]
     Indication: IMMUNODEFICIENCY
     Dosage: 8 GM IV
     Route: 042

REACTIONS (5)
  - CHILLS [None]
  - HYPOTENSION [None]
  - INFUSION RELATED REACTION [None]
  - OEDEMA [None]
  - PHARYNGEAL OEDEMA [None]
